FAERS Safety Report 25116942 (Version 1)
Quarter: 2025Q1

REPORT INFORMATION
  Report Type: Spontaneous
  Country: BR (occurrence: BR)
  Receive Date: 20250325
  Receipt Date: 20250325
  Transmission Date: 20250409
  Serious: Yes (Other)
  Sender: ORGANON
  Company Number: BR-ORGANON-O2503BRA002071

PATIENT
  Age: 22 Year
  Sex: Female

DRUGS (3)
  1. ETONOGESTREL [Suspect]
     Active Substance: ETONOGESTREL
     Indication: Endometriosis
     Route: 059
     Dates: start: 20250117
  2. ETONOGESTREL [Suspect]
     Active Substance: ETONOGESTREL
     Indication: Dysmenorrhoea
  3. ETONOGESTREL [Suspect]
     Active Substance: ETONOGESTREL
     Indication: Contraception

REACTIONS (4)
  - Vaginal haemorrhage [Not Recovered/Not Resolved]
  - Drug effective for unapproved indication [Unknown]
  - Product use in unapproved indication [Unknown]
  - Product prescribing issue [Unknown]

NARRATIVE: CASE EVENT DATE: 20250101
